FAERS Safety Report 5345371-7 (Version None)
Quarter: 2007Q2

REPORT INFORMATION
  Report Type: 
  Country: None (occurrence: None)
  Receive Date: 20070601
  Receipt Date: 20070518
  Transmission Date: 20071010
  Serious: Yes (Other)
  Sender: FDA-Public Use
  Company Number: 011812

PATIENT
  Age: 26 Year
  Sex: Female

DRUGS (2)
  1. CLARAVIS [Suspect]
     Dosage: ORAL, 30 MG, BID,ORAL
     Route: 048
     Dates: start: 20070118, end: 20070315
  2. CLARAVIS [Suspect]
     Dosage: ORAL, 30 MG, BID,ORAL
     Route: 048
     Dates: start: 20060322

REACTIONS (2)
  - DRUG EXPOSURE DURING PREGNANCY [None]
  - UNINTENDED PREGNANCY [None]
